FAERS Safety Report 8911506 (Version 1)
Quarter: 2012Q4

REPORT INFORMATION
  Report Type: 
  Country: BE (occurrence: BE)
  Receive Date: 20121116
  Receipt Date: 20121116
  Transmission Date: 20130627
  Serious: Yes (Hospitalization)
  Sender: FDA-Public Use
  Company Number: BE-JNJFOC-20121105372

PATIENT
  Age: 68 Year
  Sex: Male

DRUGS (2)
  1. SIMPONI [Suspect]
     Indication: RHEUMATOID ARTHRITIS
     Route: 058
     Dates: start: 201110, end: 20121101
  2. METHOTREXATE [Concomitant]
     Route: 065

REACTIONS (1)
  - Herpes zoster ophthalmic [Recovering/Resolving]
